FAERS Safety Report 23252330 (Version 3)
Quarter: 2025Q4

REPORT INFORMATION
  Report Type: Report from Study
  Country: US (occurrence: US)
  Receive Date: 20231201
  Receipt Date: 20251119
  Transmission Date: 20260117
  Serious: Yes (Hospitalization)
  Sender: TAKEDA
  Company Number: US-TAKEDA-2023TUS115879

PATIENT
  Age: 5 Year
  Sex: Male
  Weight: 18.6 kg

DRUGS (8)
  1. TEDUGLUTIDE [Suspect]
     Active Substance: TEDUGLUTIDE
     Indication: Short-bowel syndrome
     Dosage: 0.6 MILLIGRAM, QD
     Dates: start: 20200829, end: 20230207
  2. TEDUGLUTIDE [Suspect]
     Active Substance: TEDUGLUTIDE
     Dosage: 0.83 MILLIGRAM, QD
     Dates: start: 20230208, end: 20231122
  3. TEDUGLUTIDE [Suspect]
     Active Substance: TEDUGLUTIDE
     Dosage: 0.93 MILLIGRAM, QD
     Dates: start: 20231122
  4. TEDUGLUTIDE [Suspect]
     Active Substance: TEDUGLUTIDE
  5. ENOXAPARIN [Concomitant]
     Active Substance: ENOXAPARIN
     Indication: Anticoagulation drug level
     Dosage: 0.07 MILLILITER, BID
     Dates: start: 20220211
  6. CLONAZEPAM [Concomitant]
     Active Substance: CLONAZEPAM
     Indication: Hypertonia
     Dosage: 1.3 MILLILITER, QD
     Dates: start: 20210614
  7. Ferinsol [Concomitant]
     Indication: Iron deficiency anaemia
     Dosage: 3 MILLILITER, QD
     Dates: start: 20220509
  8. FLAGYL [Concomitant]
     Active Substance: METRONIDAZOLE\METRONIDAZOLE HYDROCHLORIDE
     Indication: Gastrointestinal microorganism overgrowth
     Dosage: 2.1 MILLILITER, BID
     Dates: start: 20220126

REACTIONS (1)
  - Pyrexia [Recovered/Resolved]

NARRATIVE: CASE EVENT DATE: 20231117
